FAERS Safety Report 4913844-4 (Version None)
Quarter: 2006Q1

REPORT INFORMATION
  Report Type: 
  Country: None (occurrence: None)
  Receive Date: 20060216
  Receipt Date: 20051004
  Transmission Date: 20060701
  Serious: Yes (Hospitalization)
  Sender: FDA-Public Use
  Company Number: US-MERCK-0510USA02224

PATIENT
  Age: 63 Year
  Sex: Female
  Weight: 65 kg

DRUGS (7)
  1. VIOXX [Suspect]
     Indication: ARTHRITIS
     Route: 048
     Dates: start: 20000419, end: 20020901
  2. VIOXX [Suspect]
     Route: 048
     Dates: start: 20021226
  3. LORTAB [Concomitant]
     Route: 065
  4. DARVOCET-N 50 [Concomitant]
     Route: 065
  5. VALIUM [Concomitant]
     Route: 065
  6. IRON (UNSPECIFIED) [Concomitant]
     Route: 065
  7. VITAMINS (UNSPECIFIED) [Concomitant]
     Route: 065

REACTIONS (4)
  - CORONARY ARTERY DISEASE [None]
  - KIDNEY INFECTION [None]
  - MYOCARDIAL INFARCTION [None]
  - SPINAL OSTEOARTHRITIS [None]
